FAERS Safety Report 4359271-2 (Version None)
Quarter: 2004Q2

REPORT INFORMATION
  Report Type: 
  Country: None (occurrence: None)
  Receive Date: 20040518
  Receipt Date: 20040512
  Transmission Date: 20050107
  Serious: Yes (Life-Threatening, Other)
  Sender: FDA-Public Use
  Company Number: 200413643US

PATIENT
  Sex: Female
  Weight: 83 kg

DRUGS (2)
  1. DOCETAXEL [Suspect]
     Indication: BREAST CANCER METASTATIC
     Route: 042
     Dates: start: 20030421, end: 20031208
  2. GEMCITABINE [Suspect]
     Indication: BREAST CANCER METASTATIC
     Route: 042
     Dates: start: 20030421, end: 20031208

REACTIONS (17)
  - ASTHENIA [None]
  - BIOPSY COLON ABNORMAL [None]
  - CYTOMEGALOVIRUS COLITIS [None]
  - ENTEROVESICAL FISTULA [None]
  - EXCESSIVE GRANULATION TISSUE [None]
  - LARGE INTESTINAL ULCER [None]
  - LIVER DISORDER [None]
  - METASTASES TO BONE [None]
  - METASTASES TO SPINE [None]
  - MUCOSAL INFLAMMATION [None]
  - MUCOSAL ULCERATION [None]
  - OEDEMA PERIPHERAL [None]
  - SEROMA [None]
  - SPINAL COMPRESSION FRACTURE [None]
  - SPINAL CORD COMPRESSION [None]
  - SPINAL CORD OEDEMA [None]
  - URINARY TRACT INFECTION [None]
